FAERS Safety Report 6795810-X (Version None)
Quarter: 2010Q2

REPORT INFORMATION
  Report Type: 
  Country: None (occurrence: None)
  Receive Date: 20100625
  Receipt Date: 20100617
  Transmission Date: 20101027
  Serious: Yes (Hospitalization)
  Sender: FDA-Public Use
  Company Number: A0790024A

PATIENT
  Age: 51 Year
  Sex: Male
  Weight: 111.4 kg

DRUGS (11)
  1. AVANDIA [Suspect]
     Indication: DIABETES MELLITUS
     Dosage: 4MG PER DAY
     Route: 048
     Dates: start: 20020101
  2. AVANDAMET [Suspect]
     Indication: DIABETES MELLITUS
     Route: 048
     Dates: start: 20030701
  3. AVALIDE [Concomitant]
  4. LIPITOR [Concomitant]
  5. CLONIDINE [Concomitant]
  6. EFFEXOR [Concomitant]
  7. CATAPRES [Concomitant]
  8. GLYBURIDE [Concomitant]
  9. ACTOS [Concomitant]
  10. TARKA [Concomitant]
  11. LOTREL [Concomitant]

REACTIONS (6)
  - CARDIAC DISORDER [None]
  - CARDIOVASCULAR DISORDER [None]
  - CEREBRAL INFARCTION [None]
  - CEREBROVASCULAR ACCIDENT [None]
  - INTRACARDIAC THROMBUS [None]
  - THROMBOSIS [None]
